FAERS Safety Report 10161934 (Version 1)
Quarter: 2014Q2

REPORT INFORMATION
  Report Type: Spontaneous
  Country: US (occurrence: US)
  Receive Date: 20140509
  Receipt Date: 20140509
  Transmission Date: 20141212
  Serious: Yes (Other)
  Sender: FDA-Public Use
  Company Number: US-SUN PHARMACEUTICAL INDUSTRIES LTD-2014SUN00997

PATIENT
  Age: 61 Year
  Sex: Female

DRUGS (4)
  1. OXALIPLATIN [Suspect]
     Indication: COLORECTAL CANCER METASTATIC
     Dosage: 100 MG/M2, OVER TWO HOURS, DAY 1, EVERY THREE WEEKS
     Route: 065
     Dates: start: 201209
  2. OXALIPLATIN [Suspect]
     Indication: METASTASES TO LIVER
  3. CAPECITABINE [Suspect]
     Indication: COLORECTAL CANCER METASTATIC
     Dosage: 850 MG/M2, BID, DAYS 1 TO 14, EVERY THREE WEEKS
     Route: 048
     Dates: start: 201209
  4. CAPECITABINE [Suspect]
     Indication: METASTASES TO LIVER

REACTIONS (2)
  - Blindness transient [Recovered/Resolved]
  - Thrombocytopenia [Unknown]
